FAERS Safety Report 25039059 (Version 1)
Quarter: 2025Q1

REPORT INFORMATION
  Report Type: Spontaneous
  Country: GB (occurrence: GB)
  Receive Date: 20250305
  Receipt Date: 20250305
  Transmission Date: 20250409
  Serious: Yes (Other)
  Sender: ORGANON
  Company Number: GB-ORGANON-O2503GBR000248

PATIENT
  Age: 18 Year
  Sex: Female

DRUGS (1)
  1. NEXPLANON [Suspect]
     Active Substance: ETONOGESTREL
     Route: 059
     Dates: start: 20240711

REACTIONS (6)
  - Pregnancy with implant contraceptive [Unknown]
  - Unintended pregnancy [Unknown]
  - Vaginal discharge [Not Recovered/Not Resolved]
  - Mood swings [Not Recovered/Not Resolved]
  - Breast enlargement [Not Recovered/Not Resolved]
  - Implant site pain [Unknown]
